FAERS Safety Report 9946735 (Version 1)
Quarter: 2014Q1

REPORT INFORMATION
  Report Type: Report from Study
  Country: US (occurrence: US)
  Receive Date: 20140303
  Receipt Date: 20140303
  Transmission Date: 20141002
  Serious: Yes (Other)
  Sender: FDA-Public Use
  Company Number: US-ABBVIE-13P-163-1064041-00

PATIENT
  Age: 49 Year
  Sex: Male

DRUGS (5)
  1. HUMIRA [Suspect]
     Indication: RHEUMATOID ARTHRITIS
  2. METHOTREXATE [Suspect]
     Indication: PRODUCT USED FOR UNKNOWN INDICATION
     Route: 048
  3. METHOTREXATE [Suspect]
     Route: 048
  4. METHOTREXATE [Suspect]
  5. ATENOLOL [Concomitant]
     Indication: PRODUCT USED FOR UNKNOWN INDICATION

REACTIONS (8)
  - Diverticulitis [Not Recovered/Not Resolved]
  - Local swelling [Unknown]
  - Joint swelling [Unknown]
  - Local swelling [Unknown]
  - Pain in extremity [Unknown]
  - Back pain [Unknown]
  - Nausea [Unknown]
  - Infection [Unknown]
